FAERS Safety Report 12194177 (Version 1)
Quarter: 2016Q1

REPORT INFORMATION
  Report Type: Spontaneous
  Country: US (occurrence: US)
  Receive Date: 20160321
  Receipt Date: 20160321
  Transmission Date: 20160526
  Serious: No
  Sender: FDA-Public Use
  Company Number: US-BAYER-2016-045738

PATIENT
  Age: 65 Year
  Sex: Male
  Weight: 77.98 kg

DRUGS (1)
  1. ALEVE [Suspect]
     Active Substance: NAPROXEN SODIUM
     Indication: BACK PAIN
     Dosage: TWO ALEVE IN THE MORNING AND ONE ALEVE IN THE EVENING, QD
     Route: 048
     Dates: start: 2010

REACTIONS (1)
  - Product use issue [None]

NARRATIVE: CASE EVENT DATE: 2010
